FAERS Safety Report 15955560 (Version 4)
Quarter: 2020Q1

REPORT INFORMATION
  Report Type: Spontaneous
  Country: US (occurrence: US)
  Receive Date: 20190213
  Receipt Date: 20200204
  Transmission Date: 20200409
  Serious: Yes (Other)
  Sender: FDA-Public Use
  Company Number: US-ASTRAZENECA-2018SF14090

PATIENT
  Age: 810 Month
  Sex: Female
  Weight: 74.8 kg

DRUGS (21)
  1. LASIX [Concomitant]
     Active Substance: FUROSEMIDE
     Dates: start: 20030108
  2. ARIMIDEX [Concomitant]
     Active Substance: ANASTROZOLE
  3. COUMADIN [Concomitant]
     Active Substance: WARFARIN SODIUM
     Dates: start: 20030108
  4. DILTIAZEM. [Concomitant]
     Active Substance: DILTIAZEM
  5. PEPCID [Concomitant]
     Active Substance: FAMOTIDINE
  6. PREVACID [Suspect]
     Active Substance: LANSOPRAZOLE
     Indication: GASTROOESOPHAGEAL REFLUX DISEASE
     Route: 065
     Dates: start: 20020101, end: 20160101
  7. LOSARTAN. [Concomitant]
     Active Substance: LOSARTAN
     Dates: start: 20030108
  8. COZAAR [Concomitant]
     Active Substance: LOSARTAN POTASSIUM
     Dates: start: 20030108
  9. ACCOLATE [Concomitant]
     Active Substance: ZAFIRLUKAST
     Dates: start: 20030108
  10. PRILOSEC [Suspect]
     Active Substance: OMEPRAZOLE MAGNESIUM
     Route: 048
  11. PRILOSEC [Suspect]
     Active Substance: OMEPRAZOLE MAGNESIUM
     Route: 048
     Dates: start: 20050101, end: 20061231
  12. PREVACID [Suspect]
     Active Substance: LANSOPRAZOLE
     Indication: GASTROOESOPHAGEAL REFLUX DISEASE
     Route: 065
  13. PREVACID [Suspect]
     Active Substance: LANSOPRAZOLE
     Indication: GASTROOESOPHAGEAL REFLUX DISEASE
     Route: 065
     Dates: start: 20020101, end: 20160101
  14. ANTIHISTAMINE [Concomitant]
     Active Substance: ANTIHISTAMINES NOS
     Dates: start: 20030108
  15. POTASSIUM IODIDE. [Concomitant]
     Active Substance: POTASSIUM IODIDE
     Dates: start: 20030108
  16. METHIMAZOLE. [Concomitant]
     Active Substance: METHIMAZOLE
     Dates: start: 20030108
  17. SOTALOL. [Concomitant]
     Active Substance: SOTALOL
  18. LEVOTHYROXINE. [Concomitant]
     Active Substance: LEVOTHYROXINE
  19. ATENOLOL. [Concomitant]
     Active Substance: ATENOLOL
     Dates: start: 20030108
  20. PREVACID [Suspect]
     Active Substance: LANSOPRAZOLE
     Indication: GASTROOESOPHAGEAL REFLUX DISEASE
     Route: 065
     Dates: start: 20030108
  21. ALDACTONE [Concomitant]
     Active Substance: SPIRONOLACTONE
     Dates: start: 20030108

REACTIONS (2)
  - Renal injury [Unknown]
  - Chronic kidney disease [Not Recovered/Not Resolved]

NARRATIVE: CASE EVENT DATE: 201604
